FAERS Safety Report 9475515 (Version 1)
Quarter: 2013Q3

REPORT INFORMATION
  Report Type: Report from Study
  Country: ES (occurrence: ES)
  Receive Date: 20130826
  Receipt Date: 20130826
  Transmission Date: 20140515
  Serious: Yes (Hospitalization)
  Sender: FDA-Public Use
  Company Number: ES-BRISTOL-MYERS SQUIBB COMPANY-19202043

PATIENT
  Age: 63 Year
  Sex: Female

DRUGS (1)
  1. BYDUREON [Suspect]
     Indication: DIABETES MELLITUS

REACTIONS (1)
  - Arrhythmia [Unknown]
